FAERS Safety Report 15234211 (Version 3)
Quarter: 2018Q3

REPORT INFORMATION
  Report Type: Report from Study
  Country: None (occurrence: TN)
  Receive Date: 20180803
  Receipt Date: 20180906
  Transmission Date: 20181010
  Serious: Yes (Death)
  Sender: FDA-Public Use
  Company Number: TN-ABBVIE-18K-160-2438426-00

PATIENT
  Age: 0 Day
  Sex: Male
  Weight: 2.6 kg

DRUGS (1)
  1. HUMIRA [Suspect]
     Active Substance: ADALIMUMAB
     Indication: MATERNAL EXPOSURE TIMING UNSPECIFIED
     Route: 064

REACTIONS (3)
  - Foetal exposure during pregnancy [Unknown]
  - Neonatal respiratory distress syndrome [Fatal]
  - Umbilical cord around neck [Fatal]

NARRATIVE: CASE EVENT DATE: 20180512
